FAERS Safety Report 6445238-7 (Version None)
Quarter: 2009Q4

REPORT INFORMATION
  Report Type: 
  Country: None (occurrence: None)
  Receive Date: 20091118
  Receipt Date: 20091117
  Transmission Date: 20100525
  Serious: Yes (Death, Life-Threatening, Hospitalization)
  Sender: FDA-Public Use
  Company Number: DE-WYE-G04523809

PATIENT
  Sex: Female

DRUGS (1)
  1. TORISEL [Suspect]
     Indication: RENAL CANCER METASTATIC
     Route: 042
     Dates: start: 20090921

REACTIONS (4)
  - BACK PAIN [None]
  - DISEASE PROGRESSION [None]
  - FISTULA [None]
  - TUMOUR HAEMORRHAGE [None]
